FAERS Safety Report 25023854 (Version 1)
Quarter: 2025Q1

REPORT INFORMATION
  Report Type: Spontaneous
  Country: FR (occurrence: FR)
  Receive Date: 20250228
  Receipt Date: 20250228
  Transmission Date: 20250409
  Serious: Yes (Death, Other)
  Sender: MERCK SHARP & DOHME LLC
  Company Number: None

PATIENT
  Age: 47 Year
  Sex: Female

DRUGS (3)
  1. KEYTRUDA [Suspect]
     Active Substance: PEMBROLIZUMAB
     Indication: Breast cancer
     Dosage: DAILY DOSE : 9.4 MILLIGRAM?CONCENTRATION: 25 MILLIGRAM PER MILLILITRE
     Route: 042
     Dates: start: 20241206, end: 20250113
  2. CARBOPLATIN [Suspect]
     Active Substance: CARBOPLATIN
     Indication: Breast cancer
     Dosage: DOSE DESCRIPTION : AUC 1.5
     Route: 042
     Dates: start: 20241206, end: 20250113
  3. PACLITAXEL [Suspect]
     Active Substance: PACLITAXEL
     Indication: Breast cancer
     Dosage: DAILY DOSE : 11.44 MILLIGRAM/KILOGRAM
     Route: 042
     Dates: start: 20241206, end: 20250113

REACTIONS (1)
  - Sudden death [Fatal]

NARRATIVE: CASE EVENT DATE: 20250117
